FAERS Safety Report 7962504-4 (Version None)
Quarter: 2011Q4

REPORT INFORMATION
  Report Type: 
  Country: None (occurrence: None)
  Receive Date: 20111207
  Receipt Date: 20111128
  Transmission Date: 20120403
  Serious: Yes (Life-Threatening, Hospitalization, Other)
  Sender: FDA-Public Use
  Company Number: US-GLAXOSMITHKLINE-A0955259A

PATIENT
  Age: 30 Year
  Sex: Female

DRUGS (2)
  1. ONDANSETRON HCL [Suspect]
     Indication: HYPEREMESIS GRAVIDARUM
     Dosage: 32MG PER DAY
     Route: 042
  2. ONDANSETRON HCL [Suspect]
     Route: 048

REACTIONS (3)
  - MATERNAL EXPOSURE DURING PREGNANCY [None]
  - DRUG INEFFECTIVE [None]
  - DEHYDRATION [None]
